FAERS Safety Report 17285299 (Version 1)
Quarter: 2020Q1

REPORT INFORMATION
  Report Type: Spontaneous
  Country: GB (occurrence: GB)
  Receive Date: 20200117
  Receipt Date: 20200117
  Transmission Date: 20200409
  Serious: Yes (Death, Hospitalization, Other)
  Sender: FDA-Public Use
  Company Number: GB-SA-2020SA006713

PATIENT
  Age: 64 Year
  Sex: Female

DRUGS (17)
  1. TRASTUZUMAB. [Suspect]
     Active Substance: TRASTUZUMAB
     Indication: BREAST CANCER METASTATIC
     Dosage: 399 MG, Q3W
     Route: 042
     Dates: start: 20150622, end: 20151119
  2. DOCETAXEL. [Suspect]
     Active Substance: DOCETAXEL
     Dosage: 80 MG, QD
     Route: 042
     Dates: start: 20150622, end: 20150622
  3. PERTUZUMAB. [Suspect]
     Active Substance: PERTUZUMAB
     Indication: BREAST CANCER METASTATIC
     Dosage: 840 MG, QD
     Route: 042
     Dates: start: 20150520, end: 20150520
  4. DALTEPARIN [Concomitant]
     Active Substance: DALTEPARIN
     Route: 058
     Dates: start: 20151005, end: 20151014
  5. DOCETAXEL. [Suspect]
     Active Substance: DOCETAXEL
     Indication: BREAST CANCER METASTATIC
     Dosage: 130 MG, QD
     Route: 042
     Dates: start: 20150522, end: 20150522
  6. RIVAROXABAN [Concomitant]
     Active Substance: RIVAROXABAN
     Indication: PYREXIA
     Dosage: 15 MG, QD
     Route: 048
     Dates: start: 20151014, end: 20151103
  7. RIVAROXABAN [Concomitant]
     Active Substance: RIVAROXABAN
     Dosage: UNK
     Dates: start: 20151104
  8. TAZOCIN [Concomitant]
     Active Substance: PIPERACILLIN SODIUM\TAZOBACTAM SODIUM
     Indication: PYREXIA
     Dosage: 4.5 MG, QD
     Route: 042
     Dates: start: 20151005, end: 20151012
  9. CALOGEN EXTRA [Concomitant]
     Dosage: SHORTS
     Route: 048
  10. AMOXYCILLIN [AMOXICILLIN] [Concomitant]
     Indication: CELLULITIS
     Route: 048
     Dates: start: 20150929
  11. STREPTOKINASE [Concomitant]
     Active Substance: STREPTOKINASE
     Dosage: 250000
     Route: 042
     Dates: start: 20151005, end: 20151014
  12. PERTUZUMAB. [Suspect]
     Active Substance: PERTUZUMAB
     Dosage: 420 MG, Q3W
     Route: 042
     Dates: start: 20150622, end: 20151119
  13. FLUCONAZOLE. [Concomitant]
     Active Substance: FLUCONAZOLE
     Route: 048
     Dates: start: 20160122, end: 20160203
  14. FLUCLOXACILLIN [Concomitant]
     Active Substance: FLUCLOXACILLIN
     Indication: CELLULITIS
     Route: 048
     Dates: start: 20150929
  15. DOCETAXEL. [Suspect]
     Active Substance: DOCETAXEL
     Dosage: 90 MG, Q3W
     Route: 042
     Dates: start: 20150714, end: 20150915
  16. TRASTUZUMAB. [Suspect]
     Active Substance: TRASTUZUMAB
     Dosage: 525 MG, QD
     Route: 042
     Dates: start: 20150521, end: 20150521
  17. AMOXYCILLIN [AMOXICILLIN] [Concomitant]
     Route: 065
     Dates: start: 20160122

REACTIONS (10)
  - Catheter site hypersensitivity [Recovered/Resolved]
  - Lower respiratory tract infection [Recovered/Resolved]
  - Pulmonary embolism [Recovered/Resolved]
  - Sepsis [Recovered/Resolved]
  - Device related infection [Recovered/Resolved]
  - Nausea [Recovered/Resolved]
  - Decreased appetite [Recovered/Resolved]
  - Cellulitis [Recovered/Resolved]
  - Catheter site erythema [Recovered/Resolved]
  - Productive cough [Not Recovered/Not Resolved]

NARRATIVE: CASE EVENT DATE: 201509
